FAERS Safety Report 8876813 (Version 2)
Quarter: 2013Q1

REPORT INFORMATION
  Report Type: Spontaneous
  Country: US (occurrence: None)
  Receive Date: 20121024
  Receipt Date: 20130124
  Transmission Date: 20140127
  Serious: Yes (Other)
  Sender: FDA-Public Use
  Company Number: JPI-P-025741

PATIENT
  Age: 26 Year
  Sex: Male

DRUGS (5)
  1. XYREM (500 MILLIGRAM/ MILLILITERS, SOLUTION) (SODIUM OXYBATE) [Suspect]
     Indication: SLEEP DISORDER
     Route: 048
     Dates: start: 2008
  2. UNSPECIFIED [Suspect]
     Indication: PRODUCT USED FOR UNKNOWN INDICATION
  3. SECOBARBITAL SODIUM [Concomitant]
  4. FLUOXETINE HYDROCHLORIDE [Concomitant]
  5. MULTIPLE UNSPECIFIED MEDICATIONS [Concomitant]

REACTIONS (4)
  - Drug abuse [None]
  - Convulsion [None]
  - Road traffic accident [None]
  - Somnolence [None]
